FAERS Safety Report 6818385-5 (Version None)
Quarter: 2010Q3

REPORT INFORMATION
  Report Type: 
  Country: None (occurrence: None)
  Receive Date: 20100706
  Receipt Date: 20080117
  Transmission Date: 20110219
  Serious: Yes (Other)
  Sender: FDA-Public Use
  Company Number: US-PFIZER INC-2008005701

PATIENT
  Sex: Male

DRUGS (1)
  1. ZMAX [Suspect]

REACTIONS (1)
  - LARGE INTESTINE PERFORATION [None]
